FAERS Safety Report 9400417 (Version 1)
Quarter: 2013Q3

REPORT INFORMATION
  Report Type: Spontaneous
  Country: US (occurrence: US)
  Receive Date: 20130715
  Receipt Date: 20130715
  Transmission Date: 20140515
  Serious: No
  Sender: FDA-Public Use
  Company Number: US-PFIZER INC-2013206093

PATIENT
  Age: 54 Year
  Sex: Male
  Weight: 86.17 kg

DRUGS (1)
  1. LIPITOR [Suspect]
     Dosage: 10 MG, DAILY
     Route: 048
     Dates: start: 201109, end: 201109

REACTIONS (1)
  - Myalgia [Recovered/Resolved]
